FAERS Safety Report 10392870 (Version 9)
Quarter: 2016Q3

REPORT INFORMATION
  Report Type: Spontaneous
  Country: US (occurrence: US)
  Receive Date: 20140819
  Receipt Date: 20160808
  Transmission Date: 20161109
  Serious: Yes (Hospitalization, Other)
  Sender: FDA-Public Use
  Company Number: US-MERCK-1408USA004694

PATIENT
  Sex: Female
  Weight: 69.84 kg

DRUGS (4)
  1. FOSAMAX [Suspect]
     Active Substance: ALENDRONATE SODIUM
     Indication: OSTEOPENIA
     Dosage: 70 MG, UNKNOWN
     Route: 048
     Dates: start: 20060621, end: 20060721
  2. FOSAMAX [Suspect]
     Active Substance: ALENDRONATE SODIUM
     Dosage: UNK, UNKNOWN
     Route: 048
     Dates: start: 20060420
  3. BONIVA [Suspect]
     Active Substance: IBANDRONATE SODIUM
     Indication: OSTEOPENIA
     Dosage: 150 MG, UNKNOWN
     Route: 048
     Dates: start: 20060724, end: 20120605
  4. IBANDRONATE SODIUM. [Suspect]
     Active Substance: IBANDRONATE SODIUM
     Indication: OSTEOPENIA
     Dosage: 150 MG, UNKNOWN
     Route: 048
     Dates: start: 20120720, end: 20121208

REACTIONS (18)
  - Urinary tract infection [Unknown]
  - Osteoporosis [Unknown]
  - Bundle branch block left [Unknown]
  - Deep vein thrombosis [Unknown]
  - Pain in extremity [Unknown]
  - Osteoarthritis [Unknown]
  - Femur fracture [Recovering/Resolving]
  - Femur fracture [Recovered/Resolved]
  - Hypertension [Not Recovered/Not Resolved]
  - Hypercholesterolaemia [Unknown]
  - Insomnia [Unknown]
  - Intramedullary rod insertion [Unknown]
  - Intramedullary rod insertion [Recovered/Resolved]
  - Groin pain [Unknown]
  - Myopathy [Unknown]
  - Generalised anxiety disorder [Unknown]
  - Vitamin D deficiency [Unknown]
  - Optic nerve disorder [Unknown]

NARRATIVE: CASE EVENT DATE: 2007
